FAERS Safety Report 4575112-2 (Version None)
Quarter: 2005Q1

REPORT INFORMATION
  Report Type: 
  Country: None (occurrence: None)
  Receive Date: 20050208
  Receipt Date: 20050124
  Transmission Date: 20050727
  Serious: Yes (Hospitalization)
  Sender: FDA-Public Use
  Company Number: NL-AMGEN-UK109033

PATIENT
  Sex: Female

DRUGS (7)
  1. NEULASTA [Suspect]
     Indication: CHEMOTHERAPY
     Route: 058
     Dates: start: 20040619, end: 20040619
  2. MICONAZOLE NITRATE [Concomitant]
     Route: 065
     Dates: start: 20040528, end: 20040627
  3. ZOFRAN [Concomitant]
     Route: 065
     Dates: start: 20040203, end: 20041104
  4. ENDOXAN [Concomitant]
     Route: 065
     Dates: end: 20041111
  5. DURATEARS [Concomitant]
     Route: 061
     Dates: start: 20040507, end: 20040721
  6. METHOTREXATE [Concomitant]
  7. FLUOROURACIL [Concomitant]

REACTIONS (5)
  - CHEST DISCOMFORT [None]
  - DYSPNOEA [None]
  - FATIGUE [None]
  - OXYGEN SATURATION DECREASED [None]
  - PULMONARY EMBOLISM [None]
